FAERS Safety Report 6414781-9 (Version None)
Quarter: 2009Q4

REPORT INFORMATION
  Report Type: 
  Country: None (occurrence: None)
  Receive Date: 20091026
  Receipt Date: 20091026
  Transmission Date: 20100525
  Serious: Yes (Hospitalization)
  Sender: FDA-Public Use
  Company Number: None

PATIENT
  Age: 58 Year
  Sex: Male
  Weight: 88.1 kg

DRUGS (1)
  1. LAMOTRIGINE [Suspect]
     Indication: SCHIZOAFFECTIVE DISORDER
     Dosage: 100 MG EVERY DAY PO
     Route: 048
     Dates: start: 20090529, end: 20090801

REACTIONS (3)
  - BLOOD PRESSURE ABNORMAL [None]
  - DRUG ERUPTION [None]
  - PRURITUS [None]
